FAERS Safety Report 18184244 (Version 2)
Quarter: 2020Q3

REPORT INFORMATION
  Report Type: Spontaneous
  Country: US (occurrence: US)
  Receive Date: 20200824
  Receipt Date: 20200906
  Transmission Date: 20201103
  Serious: Yes (Other)
  Sender: FDA-Public Use
  Company Number: US-AUROBINDO-AUR-APL-2020-039657

PATIENT
  Age: 45 Year
  Sex: Male
  Weight: 93 kg

DRUGS (3)
  1. CLOZAPINE. [Suspect]
     Active Substance: CLOZAPINE
     Dosage: 400 MILLIGRAM
     Route: 048
     Dates: start: 2014
  2. CLOZAPINE. [Suspect]
     Active Substance: CLOZAPINE
     Indication: SCHIZOAFFECTIVE DISORDER BIPOLAR TYPE
     Dosage: 750 MILLIGRAM
     Route: 048
     Dates: start: 2014
  3. CLOZAPINE. [Suspect]
     Active Substance: CLOZAPINE
     Dosage: 600 MILLIGRAM
     Route: 065

REACTIONS (7)
  - Intrusive thoughts [Recovered/Resolved]
  - Obsessive-compulsive disorder [Recovered/Resolved]
  - Condition aggravated [Recovered/Resolved]
  - Toxicity to various agents [Recovered/Resolved]
  - Salivary hypersecretion [Not Recovered/Not Resolved]
  - Violence-related symptom [Recovered/Resolved]
  - Thought broadcasting [Recovered/Resolved]

NARRATIVE: CASE EVENT DATE: 201405
